FAERS Safety Report 4500937-9 (Version None)
Quarter: 2004Q4

REPORT INFORMATION
  Report Type: 
  Country: None (occurrence: None)
  Receive Date: 20041110
  Receipt Date: 20041027
  Transmission Date: 20050328
  Serious: Yes (Death, Disabling)
  Sender: FDA-Public Use
  Company Number: 002#4#2003-00449

PATIENT
  Age: 40 Year
  Sex: Female

DRUGS (2)
  1. PPA/CPM-75/8MG (OTC) (PHENYLPROPANOLAMINE HC1, CHLORPHENIRAMINE MALEAT [Suspect]
     Dosage: ORAL
     Route: 048
  2. ESTROGENS [Concomitant]

REACTIONS (7)
  - BLOOD PRESSURE INCREASED [None]
  - DIZZINESS [None]
  - DRUG TOXICITY [None]
  - HAEMORRHAGIC STROKE [None]
  - NERVOUS SYSTEM DISORDER [None]
  - PAIN [None]
  - VENTRICULAR HYPERTROPHY [None]
